FAERS Safety Report 24762449 (Version 1)
Quarter: 2024Q4

REPORT INFORMATION
  Report Type: Spontaneous
  Country: PT (occurrence: PT)
  Receive Date: 20241221
  Receipt Date: 20241221
  Transmission Date: 20250114
  Serious: Yes (Other)
  Sender: ACCORD
  Company Number: None

PATIENT
  Age: 55 Year
  Sex: Female

DRUGS (1)
  1. LEVETIRACETAM [Suspect]
     Active Substance: LEVETIRACETAM
     Indication: Epilepsy
     Dosage: 1G 2X DIA
     Dates: start: 20240805

REACTIONS (2)
  - Pruritus [Recovered/Resolved]
  - Hand dermatitis [Recovered/Resolved]

NARRATIVE: CASE EVENT DATE: 20241001
